FAERS Safety Report 4655945-4 (Version None)
Quarter: 2005Q2

REPORT INFORMATION
  Report Type: 
  Country: None (occurrence: None)
  Receive Date: 20050506
  Receipt Date: 20050506
  Transmission Date: 20051028
  Serious: Yes (Congenital Anomaly)
  Sender: FDA-Public Use
  Company Number: None

PATIENT
  Age: 31 Year
  Sex: Female
  Weight: 149.687 kg

DRUGS (1)
  1. CARDIZEM [Suspect]
     Indication: HYPERTENSION
     Dosage: 120 MG TAB  EVERY DAY ORAL
     Route: 048
     Dates: start: 20020115, end: 20040210

REACTIONS (3)
  - CLEFT LIP [None]
  - CONGENITAL ANOMALY [None]
  - DRUG EXPOSURE DURING PREGNANCY [None]
